FAERS Safety Report 5450529-2 (Version None)
Quarter: 2007Q3

REPORT INFORMATION
  Report Type: 
  Country: None (occurrence: None)
  Receive Date: 20070806
  Receipt Date: 20070508
  Transmission Date: 20080115
  Serious: Yes (Hospitalization, Other)
  Sender: FDA-Public Use
  Company Number: 36937

PATIENT
  Age: 2 Year
  Sex: Male

DRUGS (3)
  1. MIDAZOLAM HCL [Suspect]
     Indication: ANAESTHESIA
     Dosage: 1.4 MG
     Dates: start: 20070327
  2. FENTANYL [Concomitant]
  3. NEMBUTAL (PHENOBARBITAL) [Concomitant]

REACTIONS (2)
  - ATAXIA [None]
  - CONVULSION [None]
